FAERS Safety Report 9502471 (Version 1)
Quarter: 2013Q3

REPORT INFORMATION
  Report Type: Spontaneous
  Country: US (occurrence: US)
  Receive Date: 20130906
  Receipt Date: 20130906
  Transmission Date: 20140515
  Serious: Yes (Hospitalization)
  Sender: FDA-Public Use
  Company Number: US-BRISTOL-MYERS SQUIBB COMPANY-19243740

PATIENT
  Age: 85 Year
  Sex: Female

DRUGS (1)
  1. YERVOY [Suspect]
     Dosage: 4 CYCLE COMPLETED.
     Route: 042

REACTIONS (4)
  - Confusional state [Recovering/Resolving]
  - Blood sodium decreased [Recovering/Resolving]
  - Inappropriate antidiuretic hormone secretion [Recovering/Resolving]
  - Rash [Unknown]
